FAERS Safety Report 24366830 (Version 4)
Quarter: 2024Q3

REPORT INFORMATION
  Report Type: Spontaneous
  Country: US (occurrence: US)
  Receive Date: 20240926
  Receipt Date: 20240928
  Transmission Date: 20241016
  Serious: Yes (Hospitalization)
  Sender: ROCHE
  Company Number: US-ROCHE-10000088610

PATIENT
  Age: 59 Year
  Sex: Male

DRUGS (4)
  1. RITUXIMAB [Suspect]
     Active Substance: RITUXIMAB
     Indication: Polymyositis
     Route: 065
  2. RITUXIMAB [Suspect]
     Active Substance: RITUXIMAB
     Indication: Myopathy
  3. METHOTREXATE [Suspect]
     Active Substance: METHOTREXATE
     Indication: Myopathy
     Route: 065
  4. METHOTREXATE [Suspect]
     Active Substance: METHOTREXATE
     Indication: Myositis

REACTIONS (4)
  - COVID-19 [Not Recovered/Not Resolved]
  - Candida infection [Not Recovered/Not Resolved]
  - Pneumonitis [Unknown]
  - Herpes simplex [Recovered/Resolved]
